FAERS Safety Report 4736435-7 (Version None)
Quarter: 2005Q3

REPORT INFORMATION
  Report Type: 
  Country: None (occurrence: None)
  Receive Date: 20050804
  Receipt Date: 20050719
  Transmission Date: 20060218
  Serious: Yes (Death)
  Sender: FDA-Public Use
  Company Number: CTI_0820_2005

PATIENT
  Age: 66 Year
  Sex: Male
  Weight: 68.4 kg

DRUGS (3)
  1. ZILEUTON [Suspect]
     Indication: NON-SMALL CELL LUNG CANCER
     Dosage: 600 MG QID PO
     Route: 048
     Dates: start: 20040513, end: 20040518
  2. CARBOPLATIN [Suspect]
     Indication: NON-SMALL CELL LUNG CANCER
     Dosage: 489 MG ONCE IV
     Route: 042
     Dates: start: 20040513, end: 20040513
  3. GEMCITABINE [Suspect]
     Indication: NON-SMALL CELL LUNG CANCER
     Dosage: 1710 MG ONCE IV
     Route: 042
     Dates: start: 20040513, end: 20040513

REACTIONS (10)
  - ATRIAL FIBRILLATION [None]
  - CYANOSIS [None]
  - HAEMODYNAMIC INSTABILITY [None]
  - LOSS OF CONSCIOUSNESS [None]
  - MYOCARDIAL INFARCTION [None]
  - MYOCARDIAL ISCHAEMIA [None]
  - PERICARDIAL EFFUSION [None]
  - RESPIRATORY DISTRESS [None]
  - SYNCOPE [None]
  - THERAPY NON-RESPONDER [None]
